FAERS Safety Report 7971818-3 (Version None)
Quarter: 2011Q4

REPORT INFORMATION
  Report Type: 
  Country: None (occurrence: None)
  Receive Date: 20111212
  Receipt Date: 20111129
  Transmission Date: 20120403
  Serious: Yes (Hospitalization, Other)
  Sender: FDA-Public Use
  Company Number: US-ELI_LILLY_AND_COMPANY-US201104002194

PATIENT
  Sex: Female
  Weight: 115 kg

DRUGS (11)
  1. FENTANYL [Concomitant]
     Dosage: UNK, UNKNOWN
     Route: 065
  2. FORTEO [Suspect]
     Dosage: 20 UG, QD
     Route: 058
     Dates: end: 20110401
  3. NEURONTIN [Concomitant]
     Dosage: UNK, UNKNOWN
     Route: 065
  4. CELEXA [Concomitant]
     Dosage: UNK, UNKNOWN
     Route: 065
  5. VERAPAMIL [Concomitant]
     Dosage: UNK, UNKNOWN
     Route: 065
  6. PHENYTOIN [Concomitant]
     Dosage: UNK, UNKNOWN
     Route: 065
  7. FORTEO [Suspect]
     Indication: OSTEOPOROSIS
     Dosage: 20 UG, QD
     Route: 058
     Dates: start: 20110101
  8. TRAZODONE HCL [Concomitant]
     Dosage: UNK, UNKNOWN
     Route: 065
  9. MYCOPHENOLATE MOFETIL (CELLCEPT) [Concomitant]
     Dosage: UNK, UNKNOWN
     Route: 065
  10. OXYCODONE HCL [Concomitant]
     Dosage: UNK, UNKNOWN
     Route: 065
  11. PREDNISONE [Concomitant]
     Dosage: UNK, UNKNOWN
     Route: 065

REACTIONS (3)
  - ADVERSE EVENT [None]
  - CEREBRAL SMALL VESSEL ISCHAEMIC DISEASE [None]
  - CONVULSION [None]
